FAERS Safety Report 15093206 (Version 1)
Quarter: 2018Q2

REPORT INFORMATION
  Report Type: Spontaneous
  Country: SE (occurrence: SE)
  Receive Date: 20180629
  Receipt Date: 20180629
  Transmission Date: 20180711
  Serious: Yes (Hospitalization)
  Sender: FDA-Public Use
  Company Number: SE-TEVA-2018-SE-916356

PATIENT
  Age: 64 Year
  Sex: Female

DRUGS (13)
  1. METFORMIN [Concomitant]
     Active Substance: METFORMIN HYDROCHLORIDE
  2. CITALOPRAM [Concomitant]
     Active Substance: CITALOPRAM HYDROBROMIDE
  3. BETOLVEX [Concomitant]
     Active Substance: CYANOCOBALAMIN
  4. JARDIANCE [Concomitant]
     Active Substance: EMPAGLIFLOZIN
  5. DORZOLAMID/TIMOLOL [Concomitant]
     Active Substance: DORZOLAMIDE HYDROCHLORIDE\TIMOLOL MALEATE
  6. ATORVASTATIN [Concomitant]
     Active Substance: ATORVASTATIN
  7. PREGABALIN. [Concomitant]
     Active Substance: PREGABALIN
  8. BETMIGA [Concomitant]
     Active Substance: MIRABEGRON
  9. LOSARTAN. [Concomitant]
     Active Substance: LOSARTAN
  10. FLUCONAZOLE. [Suspect]
     Active Substance: FLUCONAZOLE
     Indication: CANDIDA INFECTION
     Route: 065
     Dates: start: 20180430, end: 20180516
  11. LATANOPROST. [Concomitant]
     Active Substance: LATANOPROST
  12. TROMBYL [Concomitant]
     Active Substance: ASPIRIN
  13. LEVAXIN [Concomitant]
     Active Substance: LEVOTHYROXINE SODIUM

REACTIONS (1)
  - Dermatitis exfoliative [Recovering/Resolving]

NARRATIVE: CASE EVENT DATE: 201805
